FAERS Safety Report 17446399 (Version 2)
Quarter: 2020Q2

REPORT INFORMATION
  Report Type: Report from Study
  Country: CN (occurrence: CN)
  Receive Date: 20200221
  Receipt Date: 20200407
  Transmission Date: 20200713
  Serious: Yes (Hospitalization)
  Sender: FDA-Public Use
  Company Number: CN-TAKEDA-2019TUS067862

PATIENT
  Age: 37 Year
  Sex: Male
  Weight: 59 kg

DRUGS (11)
  1. VEDOLIZUMAB [Suspect]
     Active Substance: VEDOLIZUMAB
     Indication: COLITIS ULCERATIVE
     Dosage: UNK
     Route: 042
     Dates: start: 20190606
  2. MESALAZINE [Concomitant]
     Active Substance: MESALAMINE
     Indication: COLITIS ULCERATIVE
     Dosage: 1.0 GRAM, QID
     Route: 048
     Dates: start: 20181114
  3. BERBERINE HYDROCHLORIDE [Concomitant]
     Active Substance: BERBERINE
     Indication: COLITIS ULCERATIVE
     Dosage: 0.3 GRAM, TID
     Route: 048
     Dates: start: 20191122, end: 20191206
  4. CEFOTAXIME SODIUM [Concomitant]
     Active Substance: CEFOTAXIME SODIUM
     Indication: COLITIS ULCERATIVE
     Dosage: 4.5 MILLIGRAM, Q12H
     Route: 042
     Dates: start: 20191122, end: 20191126
  5. CEFOTAXIME SODIUM [Concomitant]
     Active Substance: CEFOTAXIME SODIUM
     Dosage: 4.5 MILLIGRAM, Q12H
     Dates: start: 20191128, end: 20191206
  6. DEXAMETHASONE SODIUM PHOSPHATE. [Concomitant]
     Active Substance: DEXAMETHASONE SODIUM PHOSPHATE
     Indication: COLITIS ULCERATIVE
     Dosage: 5 MILLIGRAM, QD
     Route: 054
     Dates: start: 20191122, end: 20191206
  7. PREDNISONE ACETATE [Concomitant]
     Active Substance: PREDNISONE ACETATE
     Indication: COLITIS ULCERATIVE
     Dosage: 40 MILLIGRAM
     Dates: start: 20191206, end: 20191206
  8. LANSOPRAZOLE. [Concomitant]
     Active Substance: LANSOPRAZOLE
     Indication: COLITIS ULCERATIVE
     Dosage: 30 MILLIGRAM, BID
     Route: 048
  9. MONTMORILLONITE [Concomitant]
     Active Substance: MONTMORILLONITE
     Indication: COLITIS ULCERATIVE
     Dosage: UNK UNK, TID
     Dates: start: 20191122, end: 20191206
  10. METHYLPREDNISOLONE SODIUM SUCCINATE. [Concomitant]
     Active Substance: METHYLPREDNISOLONE SODIUM SUCCINATE
     Indication: COLITIS ULCERATIVE
     Dosage: 40 MILLIGRAM, QD
     Route: 042
     Dates: start: 20191122, end: 20191206
  11. BIFIDOBACTERIUM BIFIDUM [Concomitant]
     Active Substance: BIFIDOBACTERIUM BIFIDUM
     Indication: FUNCTIONAL GASTROINTESTINAL DISORDER
     Dosage: UNK UNK, TID
     Route: 048
     Dates: start: 20190521

REACTIONS (3)
  - Colitis ulcerative [Not Recovered/Not Resolved]
  - Infection [Not Recovered/Not Resolved]
  - Proteinuria [Recovered/Resolved]

NARRATIVE: CASE EVENT DATE: 20191117
